FAERS Safety Report 6397506-5 (Version None)
Quarter: 2009Q4

REPORT INFORMATION
  Report Type: 
  Country: None (occurrence: None)
  Receive Date: 20091012
  Receipt Date: 20091006
  Transmission Date: 20100525
  Serious: Yes (Hospitalization, Other)
  Sender: FDA-Public Use
  Company Number: JP-BRISTOL-MYERS SQUIBB COMPANY-14810808

PATIENT
  Age: 68 Year
  Sex: Male
  Weight: 60 kg

DRUGS (11)
  1. ERBITUX [Suspect]
     Indication: COLON CANCER
     Dosage: 200MG,1IN3W FROM 04JUN09;200MG,1IN1W 25JUN-02JUL09;200MG,1IN3W 16JUL09;200MG,1IN1W 7-20AUG09(13DAY)
     Route: 042
     Dates: start: 20090529
  2. IRINOTECAN HCL [Suspect]
     Indication: COLON CANCER
     Dosage: 3RD AND RECENT INF ON 16JUL09
     Route: 042
     Dates: start: 20090604, end: 20090716
  3. FLUOROURACIL [Suspect]
     Indication: COLON CANCER
     Dosage: 3250MG(INV DRIP)FROM 04JUN-16JUL09
     Route: 040
     Dates: start: 20090604, end: 20090716
  4. LEUCOVORIN CALCIUM [Suspect]
     Indication: COLON CANCER
     Route: 041
     Dates: start: 20090604, end: 20090716
  5. AMARYL [Concomitant]
     Dosage: TABS
     Route: 048
     Dates: start: 20090529, end: 20090820
  6. BASEN [Concomitant]
     Dosage: TABS;ALSO INTRAVENOUSLY;
     Route: 048
     Dates: start: 20090529, end: 20090820
  7. BIOFERMIN [Concomitant]
     Dosage: GRANULES
     Route: 048
     Dates: start: 20090529, end: 20090820
  8. PYDOXAL [Concomitant]
     Dosage: TABS
     Route: 048
     Dates: start: 20090529, end: 20090820
  9. METHYCOOL [Concomitant]
     Dosage: METHYLCOBALAMIN WITH ALPHA LACTIC ACID (TABS)
     Route: 048
     Dates: start: 20090529, end: 20090820
  10. LOPEMIN [Concomitant]
     Dosage: CAPS
     Route: 048
     Dates: start: 20090529, end: 20090617
  11. MIYA-BM [Concomitant]
     Route: 048
     Dates: start: 20090529, end: 20090617

REACTIONS (2)
  - ANAEMIA [None]
  - FEBRILE NEUTROPENIA [None]
